FAERS Safety Report 25098920 (Version 2)
Quarter: 2025Q2

REPORT INFORMATION
  Report Type: Spontaneous
  Country: US (occurrence: US)
  Receive Date: 20250320
  Receipt Date: 20250506
  Transmission Date: 20250717
  Serious: Yes (Hospitalization)
  Sender: BIOGEN
  Company Number: US-BIOGEN-2025BI01304495

PATIENT
  Sex: Male

DRUGS (1)
  1. TECFIDERA [Suspect]
     Active Substance: DIMETHYL FUMARATE
     Indication: Multiple sclerosis
     Route: 050
     Dates: start: 20160429

REACTIONS (5)
  - Diverticulitis [Unknown]
  - Vertigo [Unknown]
  - Fall [Recovered/Resolved]
  - Incoherent [Unknown]
  - Gait disturbance [Unknown]
